FAERS Safety Report 9499121 (Version 1)
Quarter: 2013Q3

REPORT INFORMATION
  Report Type: Spontaneous
  Country: US (occurrence: US)
  Receive Date: 20130904
  Receipt Date: 20130904
  Transmission Date: 20140515
  Serious: Yes (Other)
  Sender: FDA-Public Use
  Company Number: US-ELI_LILLY_AND_COMPANY-US201308008250

PATIENT
  Sex: Male

DRUGS (1)
  1. HUMALOG LISPRO [Suspect]
     Indication: DIABETES MELLITUS

REACTIONS (4)
  - Blindness unilateral [Unknown]
  - Cataract operation complication [Unknown]
  - Retinal disorder [Unknown]
  - Cataract [Unknown]
